FAERS Safety Report 6008513-6 (Version None)
Quarter: 2008Q4

REPORT INFORMATION
  Report Type: 
  Country: None (occurrence: None)
  Receive Date: 20081217
  Receipt Date: 20081208
  Transmission Date: 20090506
  Serious: Yes (Life-Threatening, Hospitalization)
  Sender: FDA-Public Use
  Company Number: JP-ELI_LILLY_AND_COMPANY-US_020685388

PATIENT
  Age: 55 Year
  Sex: Male
  Weight: 52.5 kg

DRUGS (4)
  1. ZYPREXA [Suspect]
     Indication: SCHIZOPHRENIA
     Dosage: 2.5 MG, DAILY (1/D)
     Route: 048
     Dates: start: 20020303, end: 20020524
  2. CHLORPROMAZINE HCL [Concomitant]
     Dosage: UNK, UNKNOWN
  3. LEVOTHYROXINE SODIUM [Concomitant]
     Indication: HYPOPITUITARISM
     Dosage: UNK, UNKNOWN
     Dates: start: 20010501
  4. CORTRIL [Concomitant]
     Indication: HYPOPITUITARISM
     Dosage: UNK, UNKNOWN
     Dates: start: 20010501

REACTIONS (4)
  - C-REACTIVE PROTEIN INCREASED [None]
  - DIABETIC COMA [None]
  - PYREXIA [None]
  - WHITE BLOOD CELL COUNT INCREASED [None]
